FAERS Safety Report 13018191 (Version 1)
Quarter: 2016Q4

REPORT INFORMATION
  Report Type: Spontaneous
  Country: JP (occurrence: JP)
  Receive Date: 20161212
  Receipt Date: 20161212
  Transmission Date: 20170207
  Serious: Yes (Hospitalization)
  Sender: FDA-Public Use
  Company Number: JP-NOVOPROD-511773

PATIENT
  Age: 56 Year
  Sex: Female
  Weight: 70.3 kg

DRUGS (5)
  1. GASMOTIN [Concomitant]
     Active Substance: MOSAPRIDE CITRATE
     Indication: CHRONIC GASTRITIS
     Dosage: 15 MG
     Route: 048
     Dates: start: 20140703, end: 20160810
  2. METFORMIN HYDROCHLORIDE. [Concomitant]
     Active Substance: METFORMIN HYDROCHLORIDE
     Indication: TYPE 2 DIABETES MELLITUS
     Dosage: 750 MG, QD
     Route: 048
     Dates: start: 20160427, end: 20160810
  3. VICTOZA [Suspect]
     Active Substance: LIRAGLUTIDE
     Indication: TYPE 2 DIABETES MELLITUS
     Dosage: 0.6 MG, QD
     Route: 058
     Dates: start: 20160427, end: 20160810
  4. ATEDIO [Concomitant]
     Indication: HYPERTENSION
     Dosage: UNK
     Route: 048
     Dates: start: 20150729, end: 20150810
  5. LUVOX [Concomitant]
     Active Substance: FLUVOXAMINE MALEATE
     Indication: CHRONIC GASTRITIS
     Dosage: 75 MG
     Route: 048
     Dates: start: 20160218

REACTIONS (3)
  - Nausea [Recovered/Resolved]
  - Cerebral infarction [Recovered/Resolved]
  - Decreased appetite [Recovered/Resolved]

NARRATIVE: CASE EVENT DATE: 201608
